FAERS Safety Report 7980020-0 (Version None)
Quarter: 2011Q4

REPORT INFORMATION
  Report Type: 
  Country: None (occurrence: None)
  Receive Date: 20111214
  Receipt Date: 20111209
  Transmission Date: 20120403
  Serious: Yes (Other)
  Sender: FDA-Public Use
  Company Number: PHHY2011DE108393

PATIENT
  Sex: Male

DRUGS (5)
  1. AMLODIPINE [Concomitant]
     Route: 048
  2. TRIAMTERENE AND HYDROCHLOROTHIAZIDE [Concomitant]
     Route: 048
  3. MARCUMAR [Concomitant]
     Route: 048
  4. PRAVASTATIN [Concomitant]
     Route: 048
  5. VALSARTAN [Suspect]
     Dosage: 1 DF, BID
     Route: 048
     Dates: start: 20040101

REACTIONS (1)
  - ANGINA PECTORIS [None]
